FAERS Safety Report 16986685 (Version 1)
Quarter: 2019Q4

REPORT INFORMATION
  Report Type: Report from Study
  Country: US (occurrence: US)
  Receive Date: 20191101
  Receipt Date: 20191101
  Transmission Date: 20200122
  Serious: Yes (Other)
  Sender: FDA-Public Use
  Company Number: US-EMD SERONO-9125573

PATIENT
  Sex: Male

DRUGS (2)
  1. REBIF [Suspect]
     Active Substance: INTERFERON BETA-1A
     Indication: MULTIPLE SCLEROSIS
     Route: 058
     Dates: start: 201908
  2. LEMTRADA [Suspect]
     Active Substance: ALEMTUZUMAB
     Indication: PRODUCT USED FOR UNKNOWN INDICATION

REACTIONS (7)
  - Ligament disorder [Unknown]
  - Injection site reaction [Unknown]
  - Influenza like illness [Unknown]
  - Mycobacterium avium complex infection [Unknown]
  - Multiple sclerosis [Unknown]
  - Tendon disorder [Unknown]
  - Immunosuppression [Unknown]

NARRATIVE: CASE EVENT DATE: 2019
